FAERS Safety Report 15852780 (Version 1)
Quarter: 2019Q1

REPORT INFORMATION
  Report Type: Spontaneous
  Country: US (occurrence: US)
  Receive Date: 20190122
  Receipt Date: 20190122
  Transmission Date: 20190417
  Serious: No
  Sender: FDA-Public Use
  Company Number: US-PERRIGO-18US009577

PATIENT
  Sex: Female

DRUGS (2)
  1. PERMETHRIN. [Suspect]
     Active Substance: PERMETHRIN
     Indication: LICE INFESTATION
     Dosage: 59 ML, SINGLE
     Route: 061
     Dates: start: 20180905, end: 20180905
  2. PERMETHRIN. [Suspect]
     Active Substance: PERMETHRIN
     Dosage: 59 ML, SINGLE
     Route: 061
     Dates: start: 20180911, end: 20180911

REACTIONS (2)
  - Inappropriate schedule of product administration [Recovered/Resolved]
  - Wrong technique in product usage process [Recovered/Resolved]

NARRATIVE: CASE EVENT DATE: 20180911
